FAERS Safety Report 6724337-6 (Version None)
Quarter: 2010Q2

REPORT INFORMATION
  Report Type: 
  Country: None (occurrence: None)
  Receive Date: 20100513
  Receipt Date: 20100511
  Transmission Date: 20101027
  Serious: Yes (Life-Threatening)
  Sender: FDA-Public Use
  Company Number: JP-CEPHALON-2010002706

PATIENT
  Sex: Male

DRUGS (5)
  1. TRISENOX [Suspect]
     Route: 041
     Dates: start: 20100428, end: 20100503
  2. TRISENOX [Suspect]
     Route: 041
     Dates: start: 20100507, end: 20100510
  3. GLIBENCLAMIDE [Concomitant]
  4. MIGLITOL [Concomitant]
  5. ETANERCEPT [Concomitant]

REACTIONS (2)
  - ALTERED STATE OF CONSCIOUSNESS [None]
  - RASH [None]
